FAERS Safety Report 21153944 (Version 1)
Quarter: 2022Q3

REPORT INFORMATION
  Report Type: Spontaneous
  Country: CN (occurrence: CN)
  Receive Date: 20220801
  Receipt Date: 20220801
  Transmission Date: 20221026
  Serious: Yes (Hospitalization, Other)
  Sender: FDA-Public Use
  Company Number: CN-ABBOTT-2022A-1351473

PATIENT
  Age: 53 Year
  Sex: Male
  Weight: 74 kg

DRUGS (1)
  1. FENOFIBRATE [Suspect]
     Active Substance: FENOFIBRATE
     Indication: Lipids increased
     Dosage: DAILY DOSE- 1 CAPSULE
     Route: 048
     Dates: start: 20220701, end: 20220716

REACTIONS (1)
  - Hepatic function abnormal [Recovering/Resolving]

NARRATIVE: CASE EVENT DATE: 20220714
